FAERS Safety Report 8757449 (Version 2)
Quarter: 2012Q4

REPORT INFORMATION
  Report Type: 
  Country: US (occurrence: US)
  Receive Date: 20120904
  Receipt Date: 20121026
  Transmission Date: 20130627
  Serious: Yes (Death)
  Sender: FDA-Public Use
  Company Number: US-PFIZER INC-2012207678

PATIENT
  Age: 59 Year
  Sex: Male
  Weight: 78 kg

DRUGS (9)
  1. SUNITINIB MALATE [Suspect]
     Indication: SMALL CELL LUNG CANCER STAGE UNSPECIFIED
     Dosage: 150 mg, on day 1
     Route: 048
     Dates: start: 20120131, end: 20120131
  2. SUNITINIB MALATE [Suspect]
     Dosage: 37.5 mg, 1x/day, until progression
     Route: 048
     Dates: end: 20120813
  3. MEGACE [Suspect]
     Dosage: UNK
  4. VICODIN [Concomitant]
  5. ATIVAN [Concomitant]
  6. MORPHINE [Concomitant]
     Indication: PAIN
     Dosage: 15 mg, q3 hours as needed
  7. REMERON [Concomitant]
  8. SYNTHROID [Concomitant]
  9. XANAX [Concomitant]

REACTIONS (1)
  - Death [Fatal]
